FAERS Safety Report 5675289-1 (Version None)
Quarter: 2008Q2

REPORT INFORMATION
  Report Type: 
  Country: None (occurrence: None)
  Receive Date: 20080307
  Receipt Date: 20071119
  Transmission Date: 20081010
  Serious: Yes (Other)
  Sender: FDA-Public Use
  Company Number: US200711004421

PATIENT
  Age: 57 Year
  Sex: Male

DRUGS (1)
  1. GEMZAR [Suspect]
     Indication: PANCREATIC CARCINOMA
     Dosage: 2 G, OTHER
     Route: 050
     Dates: start: 20070601

REACTIONS (3)
  - DEPRESSION [None]
  - HAEMOGLOBIN DECREASED [None]
  - HYPERTENSION [None]
